FAERS Safety Report 18503865 (Version 5)
Quarter: 2021Q3

REPORT INFORMATION
  Report Type: Report from Study
  Country: US (occurrence: US)
  Receive Date: 20201113
  Receipt Date: 20210922
  Transmission Date: 20211014
  Serious: No
  Sender: FDA-Public Use
  Company Number: NVSC2020US300293

PATIENT
  Age: 70 Year
  Sex: Female

DRUGS (1)
  1. ENTRESTO [Suspect]
     Active Substance: SACUBITRIL\VALSARTAN
     Indication: PRODUCT USED FOR UNKNOWN INDICATION
     Dosage: 50 MG(24/26), BID
     Route: 048
     Dates: start: 202007

REACTIONS (10)
  - Weight increased [Recovered/Resolved]
  - Weight decreased [Unknown]
  - Hypotension [Unknown]
  - Heart rate increased [Unknown]
  - Dyspnoea [Recovered/Resolved]
  - Depressed mood [Unknown]
  - Pain in extremity [Unknown]
  - Nervousness [Unknown]
  - Wrong technique in product usage process [Unknown]
  - Swelling [Recovered/Resolved]

NARRATIVE: CASE EVENT DATE: 20201113
